FAERS Safety Report 21604518 (Version 8)
Quarter: 2024Q4

REPORT INFORMATION
  Report Type: Report from Study
  Country: US (occurrence: US)
  Receive Date: 20221116
  Receipt Date: 20241016
  Transmission Date: 20250115
  Serious: Yes (Other)
  Sender: NOVARTIS
  Company Number: US-002147023-NVSC2022US258355

PATIENT
  Age: 50 Year
  Sex: Female

DRUGS (2)
  1. KESIMPTA [Suspect]
     Active Substance: OFATUMUMAB
     Indication: Multiple sclerosis
     Dosage: 20 MG, QW (FIRST DOSE)
     Route: 058
     Dates: start: 20221104
  2. KESIMPTA [Suspect]
     Active Substance: OFATUMUMAB
     Dosage: 20 MG, QMO (SECOND DOSE)
     Route: 058

REACTIONS (15)
  - Multiple sclerosis [Unknown]
  - Musculoskeletal stiffness [Recovering/Resolving]
  - Migraine [Recovering/Resolving]
  - Paraesthesia [Unknown]
  - Headache [Unknown]
  - Blood zinc decreased [Unknown]
  - White blood cell count decreased [Unknown]
  - Myalgia [Recovering/Resolving]
  - Chills [Recovering/Resolving]
  - Sinusitis [Unknown]
  - Abdominal pain [Not Recovered/Not Resolved]
  - Pollakiuria [Unknown]
  - Weight increased [Unknown]
  - Insomnia [Unknown]
  - Thyroxine decreased [Unknown]

NARRATIVE: CASE EVENT DATE: 20221104
